FAERS Safety Report 8446398-9 (Version None)
Quarter: 2012Q2

REPORT INFORMATION
  Report Type: 
  Country: None (occurrence: None)
  Receive Date: 20120618
  Receipt Date: 20120413
  Transmission Date: 20120825
  Serious: Yes (Other)
  Sender: FDA-Public Use
  Company Number: US-TEVA-318253USA

PATIENT
  Sex: Female
  Weight: 61.29 kg

DRUGS (6)
  1. CORTICOSTEROIDS [Concomitant]
     Route: 008
     Dates: start: 20111001
  2. DICLOFENAC SODIUM [Concomitant]
     Dosage: DAILY
     Route: 061
  3. HYDROCHLOROTHIAZIDE [Concomitant]
     Indication: HYPERTENSION
     Dosage: DAILY
     Route: 048
     Dates: start: 20111019
  4. ACTIQ [Suspect]
     Indication: FIBROMYALGIA
     Dosage: 8000 MICROGRAM; 180 LOZENGES EVERY 10 DAYS
     Route: 002
     Dates: end: 20120101
  5. FENTANYL-100 [Concomitant]
     Indication: PAIN
     Dosage: 100 MICROGRAM;
     Route: 062
  6. METAXALONE [Concomitant]
     Indication: MUSCLE SPASMS
     Dosage: 3200 MILLIGRAM; 3-4 TIMES A DAY PRN
     Route: 048
     Dates: start: 20100527

REACTIONS (4)
  - OFF LABEL USE [None]
  - TOOTH DISORDER [None]
  - DENTAL CARIES [None]
  - DRUG PRESCRIBING ERROR [None]
